FAERS Safety Report 22385046 (Version 6)
Quarter: 2024Q1

REPORT INFORMATION
  Report Type: Spontaneous
  Country: US (occurrence: US)
  Receive Date: 20230530
  Receipt Date: 20240319
  Transmission Date: 20240410
  Serious: No
  Sender: FDA-Public Use
  Company Number: US-PFIZER INC-202200402866

PATIENT
  Age: 85 Year
  Sex: Female
  Weight: 59.87 kg

DRUGS (2)
  1. TIKOSYN [Suspect]
     Active Substance: DOFETILIDE
     Indication: Atrial fibrillation
     Dosage: 250 UG, 2X/DAY
     Route: 048
     Dates: start: 2022
  2. XANAX [Concomitant]
     Active Substance: ALPRAZOLAM
     Dosage: 0.125 MG, 1X/DAY PRN (0.25 MG ORAL TABLET, TAKE 1/2 TABLET)
     Route: 048

REACTIONS (2)
  - Body height decreased [Unknown]
  - Product dispensing error [Unknown]
